FAERS Safety Report 21240283 (Version 1)
Quarter: 2022Q3

REPORT INFORMATION
  Report Type: Spontaneous
  Country: US (occurrence: None)
  Receive Date: 20220820
  Receipt Date: 20220820
  Transmission Date: 20221027
  Serious: Yes (Other)
  Sender: FDA-Public Use
  Company Number: None

PATIENT
  Age: 69 Year
  Sex: Male
  Weight: 89.31 kg

DRUGS (36)
  1. CYCLOPHOSPHAMIDE [Suspect]
     Active Substance: CYCLOPHOSPHAMIDE
     Indication: Plasma cell myeloma
     Dosage: OTHER FREQUENCY : QW21ON7OF;?
     Route: 048
     Dates: end: 20220820
  2. ACYCLOVIR [Concomitant]
     Active Substance: ACYCLOVIR
  3. AMLODIPINE [Concomitant]
     Active Substance: AMLODIPINE BESYLATE
  4. ASPIRIN [Concomitant]
     Active Substance: ASPIRIN
  5. ATENOLOL [Concomitant]
     Active Substance: ATENOLOL
  6. BACTRIM [Concomitant]
     Active Substance: SULFAMETHOXAZOLE\TRIMETHOPRIM
  7. BUSPIRONE [Concomitant]
     Active Substance: BUSPIRONE HYDROCHLORIDE
  8. CALCITONIN [Concomitant]
     Active Substance: CALCITONIN
  9. CALCIUM [Concomitant]
     Active Substance: CALCIUM
  10. CITALOPRAM [Concomitant]
     Active Substance: CITALOPRAM HYDROBROMIDE
  11. CLONAZEPAM [Concomitant]
     Active Substance: CLONAZEPAM
  12. COLACE [Concomitant]
     Active Substance: DOCUSATE SODIUM
  13. COMBIVENT [Concomitant]
     Active Substance: ALBUTEROL SULFATE\IPRATROPIUM BROMIDE
  14. DEXAMETHASONE [Concomitant]
     Active Substance: DEXAMETHASONE
  15. FERROUS SULFATE [Concomitant]
     Active Substance: FERROUS SULFATE
  16. FISH OIL [Concomitant]
     Active Substance: FISH OIL
  17. FLOANSE [Concomitant]
  18. GABAPENTING [Concomitant]
  19. HYDRALAZINE [Concomitant]
     Active Substance: HYDRALAZINE HYDROCHLORIDE
  20. ISOSORBINE MONONITRATE [Concomitant]
  21. JANUVIA [Concomitant]
     Active Substance: SITAGLIPTIN PHOSPHATE
  22. LASIX [Concomitant]
     Active Substance: FUROSEMIDE
  23. MIRALAX [Concomitant]
     Active Substance: POLYETHYLENE GLYCOL 3350
  24. MS CONTIN [Concomitant]
     Active Substance: MORPHINE SULFATE
  25. NORCO [Concomitant]
     Active Substance: ACETAMINOPHEN\HYDROCODONE BITARTRATE
  26. ONDANSETRON [Concomitant]
     Active Substance: ONDANSETRON
  27. POTASSIUM CHLORIDE [Concomitant]
     Active Substance: POTASSIUM CHLORIDE
  28. PRILOSEC [Concomitant]
     Active Substance: OMEPRAZOLE MAGNESIUM
  29. PROCHLORPERAZINE [Concomitant]
     Active Substance: PROCHLORPERAZINE
  30. SENNA PLUS [Concomitant]
     Active Substance: DOCUSATE SODIUM\SENNOSIDES\SENNOSIDES A AND B
  31. SIMVASTATIN [Concomitant]
     Active Substance: SIMVASTATIN
  32. TRAMADOL [Concomitant]
     Active Substance: TRAMADOL
  33. VICODIN [Concomitant]
     Active Substance: ACETAMINOPHEN\HYDROCODONE BITARTRATE
  34. VITAMIN B12 [Concomitant]
     Active Substance: CYANOCOBALAMIN
  35. VITAMIN C [Concomitant]
     Active Substance: ASCORBIC ACID
  36. VITAMIN D3 [Concomitant]
     Active Substance: CHOLECALCIFEROL

REACTIONS (2)
  - Disease progression [None]
  - Platelet count [None]
